FAERS Safety Report 19410210 (Version 1)
Quarter: 2021Q2

REPORT INFORMATION
  Report Type: Other
  Country: US (occurrence: US)
  Receive Date: 20210614
  Receipt Date: 20210614
  Transmission Date: 20210717
  Serious: Yes (Other)
  Sender: FDA-Public Use
  Company Number: US-ROCHE-2846261

PATIENT
  Age: 7 Year
  Sex: Male

DRUGS (13)
  1. MYCOPHENOLATE MOFETIL. [Suspect]
     Active Substance: MYCOPHENOLATE MOFETIL
     Indication: LIVER TRANSPLANT
     Route: 065
  2. PIPERACILLIN. [Concomitant]
     Active Substance: PIPERACILLIN SODIUM
  3. VANCOMYCIN [Concomitant]
     Active Substance: VANCOMYCIN
  4. CEFEPIME [Concomitant]
     Active Substance: CEFEPIME HYDROCHLORIDE
  5. METHYLPREDNISOLONE. [Suspect]
     Active Substance: METHYLPREDNISOLONE
     Indication: LIVER TRANSPLANT
     Route: 065
  6. PREDNISOLONE. [Suspect]
     Active Substance: PREDNISOLONE
     Indication: LIVER TRANSPLANT
     Route: 065
  7. TACROLIMUS. [Suspect]
     Active Substance: TACROLIMUS
     Indication: LIVER TRANSPLANT
     Route: 065
  8. ERYTHROMYCIN. [Concomitant]
     Active Substance: ERYTHROMYCIN
  9. MEROPENEM. [Concomitant]
     Active Substance: MEROPENEM
  10. SULFAMETHOXAZOLE/TRIMETHOPRIM [Concomitant]
     Active Substance: SULFAMETHOXAZOLE\TRIMETHOPRIM
  11. BORTEZOMIB. [Suspect]
     Active Substance: BORTEZOMIB
     Indication: LIVER TRANSPLANT
     Route: 065
  12. TAZOBACTAM [Concomitant]
     Active Substance: TAZOBACTAM
  13. PENICILLIN V POTASSIUM. [Concomitant]
     Active Substance: PENICILLIN V POTASSIUM

REACTIONS (5)
  - Influenza [Unknown]
  - Enterobacter bacteraemia [Unknown]
  - Respiratory tract infection viral [Unknown]
  - Klebsiella bacteraemia [Unknown]
  - Anastomotic haemorrhage [Unknown]
